FAERS Safety Report 7556605-2 (Version None)
Quarter: 2011Q2

REPORT INFORMATION
  Report Type: 
  Country: None (occurrence: None)
  Receive Date: 20110615
  Receipt Date: 20110615
  Transmission Date: 20111010
  Serious: Yes (Disabling)
  Sender: FDA-Public Use
  Company Number: None

PATIENT
  Sex: Male
  Weight: 19.1 kg

DRUGS (1)
  1. IBUPROFEN [Suspect]
     Indication: OTITIS MEDIA
     Dosage: 190MG ONCE PO
     Route: 048
     Dates: start: 20110424, end: 20110424

REACTIONS (4)
  - CRYING [None]
  - LIQUID PRODUCT PHYSICAL ISSUE [None]
  - PAIN [None]
  - PRODUCT TASTE ABNORMAL [None]
